FAERS Safety Report 7353080-8 (Version None)
Quarter: 2011Q1

REPORT INFORMATION
  Report Type: 
  Country: None (occurrence: None)
  Receive Date: 20110315
  Receipt Date: 20110307
  Transmission Date: 20110831
  Serious: Yes (Hospitalization)
  Sender: FDA-Public Use
  Company Number: B0705676A

PATIENT
  Age: 40 Year
  Sex: Female

DRUGS (1)
  1. ZYBAN [Suspect]

REACTIONS (4)
  - HEADACHE [None]
  - ORGASM ABNORMAL [None]
  - CRYING [None]
  - SEROTONIN SYNDROME [None]
